FAERS Safety Report 9422638 (Version 2)
Quarter: 2013Q3

REPORT INFORMATION
  Report Type: Spontaneous
  Country: JP (occurrence: JP)
  Receive Date: 20130726
  Receipt Date: 20130801
  Transmission Date: 20140515
  Serious: Yes (Other)
  Sender: FDA-Public Use
  Company Number: JP-ELI_LILLY_AND_COMPANY-JP201307007022

PATIENT
  Age: 81 Year
  Sex: Female
  Weight: 47 kg

DRUGS (5)
  1. CYMBALTA [Suspect]
     Indication: DEPRESSION
     Dosage: 20 MG, QD
     Route: 048
     Dates: start: 20130123, end: 20130319
  2. REMINYL [Concomitant]
     Indication: DEMENTIA ALZHEIMER^S TYPE
     Dosage: 16 MG, BID
     Route: 048
     Dates: start: 20120406
  3. ZYPREXA [Concomitant]
     Indication: SENILE PSYCHOSIS
     Dosage: UNK
     Route: 048
     Dates: start: 20120316, end: 20130408
  4. AMLODIPIN                          /00972402/ [Concomitant]
     Indication: HYPERTENSION
     Dosage: 2.5 MG, QD
     Route: 048
     Dates: start: 20121121
  5. YOKUKAN-SAN [Concomitant]
     Indication: DEMENTIA ALZHEIMER^S TYPE
     Dosage: 2.5 MG, TID
     Route: 048
     Dates: start: 20120406, end: 20130305

REACTIONS (1)
  - Epilepsy [Recovered/Resolved]
